FAERS Safety Report 17423701 (Version 5)
Quarter: 2020Q1

REPORT INFORMATION
  Report Type: Report from Study
  Country: None (occurrence: CH)
  Receive Date: 20200217
  Receipt Date: 20200325
  Transmission Date: 20200409
  Serious: Yes (Hospitalization)
  Sender: FDA-Public Use
  Company Number: CH-ABBVIE-20K-151-3276046-00

PATIENT
  Age: 72 Year
  Sex: Male

DRUGS (6)
  1. DUODOPA [Suspect]
     Active Substance: CARBIDOPA\LEVODOPA
     Dosage: MD: 8 ML, CRD: 2.0  ML/H, CRN: 0 ML/H, ED: 1.5 ML?16 H THERAPY
     Route: 050
     Dates: start: 20200220, end: 20200303
  2. DUODOPA [Suspect]
     Active Substance: CARBIDOPA\LEVODOPA
     Indication: PARKINSON^S DISEASE
     Route: 050
     Dates: start: 20120716, end: 20171020
  3. DUODOPA [Suspect]
     Active Substance: CARBIDOPA\LEVODOPA
     Dosage: MD: 11 ML, CRD: 3 ML/H, CRN: 0 ML/H, ED: 1.8 ML?16 H THERAPY
     Route: 050
     Dates: start: 20171020, end: 20190304
  4. DUODOPA [Suspect]
     Active Substance: CARBIDOPA\LEVODOPA
     Dosage: MD: 8 ML, CRD: 2.5 ML/H, CRN: 0 ML/H, ED: 1.5 ML?16 H THERAPY
     Route: 050
     Dates: start: 20190304, end: 202002
  5. DUODOPA [Suspect]
     Active Substance: CARBIDOPA\LEVODOPA
     Dosage: MD: 8 ML, CRD: 1.5 ML/H, CRN: 0 ML/H, ED: 1.5 ML?16 H THERAPY
     Route: 050
     Dates: start: 202002, end: 20200220
  6. DUODOPA [Suspect]
     Active Substance: CARBIDOPA\LEVODOPA
     Dosage: MD 8 ML,CONTINUOUS RATE-DAY 2.3 ML/H,CONTINUOUS?RATE-NIGHT 0ML/H, ED 1.5 ML/ 16H THERAPY
     Route: 050
     Dates: start: 20200303

REACTIONS (7)
  - Malaise [Recovering/Resolving]
  - Akinesia [Not Recovered/Not Resolved]
  - Pneumonia [Recovered/Resolved]
  - Incorrect dose administered [Recovered/Resolved]
  - Malaise [Recovered/Resolved]
  - Vomiting [Recovered/Resolved]
  - Device difficult to use [Unknown]

NARRATIVE: CASE EVENT DATE: 2020
